FAERS Safety Report 19157009 (Version 1)
Quarter: 2021Q2

REPORT INFORMATION
  Report Type: Spontaneous
  Country: DE (occurrence: DE)
  Receive Date: 20210420
  Receipt Date: 20210420
  Transmission Date: 20210717
  Serious: Yes (Other)
  Sender: FDA-Public Use
  Company Number: NVSC2021DE086098

PATIENT
  Sex: Female
  Weight: 75 kg

DRUGS (1)
  1. METOHEXAL 100 MG RETARD (METOPROLOL TARTRATE) [Suspect]
     Active Substance: METOPROLOL TARTRATE
     Indication: PRODUCT USED FOR UNKNOWN INDICATION
     Dosage: 2 DF, QD
     Route: 065
     Dates: start: 202004

REACTIONS (1)
  - Intestinal haemorrhage [Not Recovered/Not Resolved]

NARRATIVE: CASE EVENT DATE: 202104
